FAERS Safety Report 14081732 (Version 2)
Quarter: 2017Q4

REPORT INFORMATION
  Report Type: Spontaneous
  Country: IN (occurrence: IN)
  Receive Date: 20171013
  Receipt Date: 20171107
  Transmission Date: 20180321
  Serious: Yes (Death)
  Sender: FDA-Public Use
  Company Number: IN-BAYER-2017-193775

PATIENT
  Age: 25 Year
  Sex: Female

DRUGS (1)
  1. CIPROFLOXACIN. [Suspect]
     Active Substance: CIPROFLOXACIN
     Indication: OROPHARYNGEAL PAIN
     Dosage: 500 MG, BID
     Route: 048

REACTIONS (2)
  - Sepsis [Fatal]
  - Toxic epidermal necrolysis [Fatal]
